FAERS Safety Report 9730658 (Version 1)
Quarter: 2013Q4

REPORT INFORMATION
  Report Type: Spontaneous
  Country: US (occurrence: US)
  Receive Date: 20131202
  Receipt Date: 20131202
  Transmission Date: 20140711
  Serious: No
  Sender: FDA-Public Use
  Company Number: US-AMGEN-USASP2013083151

PATIENT
  Age: 41 Year
  Sex: Female

DRUGS (19)
  1. ENBREL [Suspect]
     Indication: PRODUCT USED FOR UNKNOWN INDICATION
     Dosage: UNK
     Route: 065
  2. CALCIUM [Concomitant]
     Dosage: UNK
  3. MAGNESIUM [Concomitant]
     Dosage: UNK
  4. ZINC [Concomitant]
     Dosage: UNK
  5. LEFLUNOMIDE [Concomitant]
     Dosage: UNK
  6. METHOTREXATE [Concomitant]
     Dosage: UNK
  7. CYMBALTA [Concomitant]
     Dosage: UNK
  8. FOLIC ACID [Concomitant]
     Dosage: UNK
  9. TRAZODONE HCL [Concomitant]
     Dosage: UNK
  10. SULINDAC [Concomitant]
     Dosage: UNK
  11. VITAMIN D                          /00107901/ [Concomitant]
     Dosage: UNK
  12. POTASSIUM GLUCONATE [Concomitant]
     Dosage: UNK
  13. ACIDOPHILUS [Concomitant]
     Dosage: UNK
  14. VITAMIN B6 [Concomitant]
     Dosage: UNK
  15. TURMERIC                           /01079602/ [Concomitant]
     Dosage: UNK
  16. MULTIPLE VITAMINS [Concomitant]
     Dosage: UNK
  17. HYDROCHLOROTHIAZIDE [Concomitant]
     Dosage: UNK
  18. MONTELUKAST SODIUM [Concomitant]
     Dosage: UNK
  19. XELJANZ [Concomitant]
     Indication: RHEUMATOID ARTHRITIS
     Dosage: 5 MG, BID
     Route: 048
     Dates: start: 201306

REACTIONS (1)
  - Drug hypersensitivity [Not Recovered/Not Resolved]
